FAERS Safety Report 9490783 (Version 1)
Quarter: 2013Q3

REPORT INFORMATION
  Report Type: Spontaneous
  Country: US (occurrence: None)
  Receive Date: 20130828
  Receipt Date: 20130828
  Transmission Date: 20140515
  Serious: No
  Sender: FDA-Public Use
  Company Number: None

PATIENT
  Age: 66 Year
  Sex: Female
  Weight: 54.89 kg

DRUGS (2)
  1. ETODOLAC [Suspect]
     Indication: MUSCULOSKELETAL PAIN
     Dosage: ETODOLAC 400, BID, PO
     Route: 048
     Dates: start: 20130508, end: 20130709
  2. ETODOLAC [Suspect]
     Indication: ARTHRALGIA
     Dosage: ETODOLAC 400, BID, PO
     Route: 048
     Dates: start: 20130508, end: 20130709

REACTIONS (3)
  - Anaemia [None]
  - Hepatitis [None]
  - Hypothyroidism [None]
